FAERS Safety Report 12191082 (Version 2)
Quarter: 2016Q1

REPORT INFORMATION
  Report Type: Spontaneous
  Country: KR (occurrence: KR)
  Receive Date: 20160318
  Receipt Date: 20160328
  Transmission Date: 20160526
  Serious: Yes (Hospitalization, Other)
  Sender: FDA-Public Use
  Company Number: KR-009507513-1603KOR008588

PATIENT
  Age: 27 Year
  Sex: Female

DRUGS (1)
  1. DESOGESTREL 150MCG (+) ETHINYL ESTRADIOL 20MCG [Suspect]
     Active Substance: DESOGESTREL\ETHINYL ESTRADIOL
     Indication: PRODUCT USED FOR UNKNOWN INDICATION
     Dosage: UNK
     Route: 048

REACTIONS (6)
  - Dyspnoea [Unknown]
  - Visual impairment [Unknown]
  - Blood pressure decreased [Unknown]
  - Pulmonary embolism [Unknown]
  - Loss of consciousness [Unknown]
  - Fall [Unknown]
